FAERS Safety Report 5915866-3 (Version None)
Quarter: 2008Q4

REPORT INFORMATION
  Report Type: 
  Country: None (occurrence: None)
  Receive Date: 20081010
  Receipt Date: 20080929
  Transmission Date: 20090506
  Serious: Yes (Other)
  Sender: FDA-Public Use
  Company Number: US-PFIZER INC-2008083560

PATIENT
  Sex: Male

DRUGS (2)
  1. LYRICA [Suspect]
     Indication: DIABETES MELLITUS
  2. LYRICA [Suspect]
     Indication: FIBROMYALGIA

REACTIONS (2)
  - CONVULSION [None]
  - SURGERY [None]
